FAERS Safety Report 22619230 (Version 2)
Quarter: 2023Q2

REPORT INFORMATION
  Report Type: Spontaneous
  Country: US (occurrence: US)
  Receive Date: 20230620
  Receipt Date: 20230623
  Transmission Date: 20230722
  Serious: No
  Sender: FDA-Public Use
  Company Number: US-Ipsen Biopharmaceuticals, Inc.-2023-14931

PATIENT
  Age: 51 Year
  Sex: Male

DRUGS (1)
  1. SOMATULINE DEPOT [Suspect]
     Active Substance: LANREOTIDE ACETATE
     Indication: Acromegaly
     Dosage: ROUTE: UNDER THE SKIN
     Route: 065
     Dates: start: 20180309

REACTIONS (6)
  - Neoplasm [Unknown]
  - Adverse event [Unknown]
  - Irritability [Unknown]
  - Product dose omission issue [Unknown]
  - Hormone level abnormal [Unknown]
  - Loss of personal independence in daily activities [Unknown]
